FAERS Safety Report 14187867 (Version 1)
Quarter: 2017Q4

REPORT INFORMATION
  Report Type: Spontaneous
  Country: FR (occurrence: FR)
  Receive Date: 20171114
  Receipt Date: 20171114
  Transmission Date: 20180321
  Serious: Yes (Other)
  Sender: FDA-Public Use
  Company Number: FR-MERCK KGAA-2034032

PATIENT
  Age: 44 Year
  Sex: Female

DRUGS (1)
  1. NOVOTHYROX [Suspect]
     Active Substance: LEVOTHYROXINE SODIUM
     Indication: HYPOTHYROIDISM
     Route: 048
     Dates: start: 20170401

REACTIONS (10)
  - Mood altered [Unknown]
  - Amnesia [Unknown]
  - Irritability [Unknown]
  - Oedema [Unknown]
  - Dyspnoea [Unknown]
  - Vision blurred [Unknown]
  - Depression [Unknown]
  - Tachycardia [Unknown]
  - Weight increased [Unknown]
  - Choking [Unknown]

NARRATIVE: CASE EVENT DATE: 201704
